FAERS Safety Report 16124272 (Version 1)
Quarter: 2019Q1

REPORT INFORMATION
  Report Type: Spontaneous
  Country: CH (occurrence: CH)
  Receive Date: 20190327
  Receipt Date: 20190327
  Transmission Date: 20190418
  Serious: Yes (Hospitalization, Other)
  Sender: FDA-Public Use
  Company Number: PHHY2019CH066004

PATIENT
  Age: 45 Year
  Sex: Male

DRUGS (9)
  1. OMEPRAZOLE. [Concomitant]
     Active Substance: OMEPRAZOLE
     Indication: PRODUCT USED FOR UNKNOWN INDICATION
     Route: 065
  2. ETHAMBUTOL [Suspect]
     Active Substance: ETHAMBUTOL HYDROCHLORIDE
     Indication: LUNG INFECTION
     Route: 065
  3. AZATHIOPRINE. [Suspect]
     Active Substance: AZATHIOPRINE
     Indication: CHRONIC OBSTRUCTIVE PULMONARY DISEASE
  4. RIFABUTIN. [Suspect]
     Active Substance: RIFABUTIN
     Indication: LUNG INFECTION
     Route: 065
  5. MESALAZINE [Concomitant]
     Active Substance: MESALAMINE
     Indication: PRODUCT USED FOR UNKNOWN INDICATION
     Route: 065
  6. CLARITHROMYCIN. [Suspect]
     Active Substance: CLARITHROMYCIN
     Indication: LUNG INFECTION
     Route: 065
  7. AZATHIOPRINE. [Suspect]
     Active Substance: AZATHIOPRINE
     Indication: INFLAMMATORY BOWEL DISEASE
     Route: 065
  8. COUMADIN [Concomitant]
     Active Substance: WARFARIN SODIUM
     Indication: PRODUCT USED FOR UNKNOWN INDICATION
     Route: 065
  9. BISOPROLOL [Concomitant]
     Active Substance: BISOPROLOL
     Indication: PRODUCT USED FOR UNKNOWN INDICATION
     Route: 065

REACTIONS (5)
  - Atypical mycobacterial infection [Unknown]
  - Pyrexia [Unknown]
  - Aortic stenosis [Unknown]
  - Abdominal pain upper [Unknown]
  - Dyspnoea [Unknown]
